FAERS Safety Report 12763401 (Version 2)
Quarter: 2016Q4

REPORT INFORMATION
  Report Type: Spontaneous
  Country: BR (occurrence: BR)
  Receive Date: 20160920
  Receipt Date: 20161021
  Transmission Date: 20170207
  Serious: Yes (Hospitalization, Other)
  Sender: FDA-Public Use
  Company Number: BR-AMGEN-BRASP2016127780

PATIENT
  Age: 46 Year
  Sex: Female
  Weight: 48 kg

DRUGS (11)
  1. OMEPRAZOLE. [Concomitant]
     Active Substance: OMEPRAZOLE
     Indication: GASTRIC DISORDER
     Dosage: 2 TABLETS PER DAY
     Route: 048
     Dates: start: 2008
  2. CALCIUM CARBONATE. [Concomitant]
     Active Substance: CALCIUM CARBONATE
     Indication: MINERAL SUPPLEMENTATION
     Dosage: 1 TABLET PER DAY
     Route: 048
     Dates: start: 2012
  3. ALENDRONATE SODIUM. [Concomitant]
     Active Substance: ALENDRONATE SODIUM
     Indication: OSTEOPOROSIS
     Dosage: 70 MG (1 TABLET) PER WEEK
     Route: 048
     Dates: start: 2010
  4. PREDNISONE. [Concomitant]
     Active Substance: PREDNISONE
     Indication: ADRENOCORTICAL STEROID THERAPY
     Dosage: 5 MG (1 TABLET) PER DAY
     Route: 048
     Dates: start: 2008
  5. METHOTREXATE. [Concomitant]
     Active Substance: METHOTREXATE
     Indication: RHEUMATOID ARTHRITIS
     Dosage: 1 SUBCUTANEOUS APPLICATION, ONCE WEEKLY
     Route: 058
     Dates: start: 2008
  6. PROFENID RETARD [Concomitant]
     Indication: PAIN
     Dosage: 1 DF, DAILY
     Route: 048
     Dates: start: 20160905, end: 20160905
  7. NITROFURANTOIN. [Concomitant]
     Active Substance: NITROFURANTOIN
     Indication: URINARY TRACT INFECTION
     Dosage: 1 TABLET PER DAY
     Route: 048
     Dates: start: 201603
  8. PROFENID [Concomitant]
     Active Substance: KETOPROFEN
     Indication: PAIN
     Dosage: 1 DF, DAILY
     Route: 048
     Dates: start: 20160905, end: 20160905
  9. PREGABALIN. [Concomitant]
     Active Substance: PREGABALIN
     Indication: PAIN
     Dosage: 1 TABLET PER DAY
     Route: 048
     Dates: start: 2014
  10. ENBREL [Suspect]
     Active Substance: ETANERCEPT
     Indication: RHEUMATOID ARTHRITIS
     Dosage: 50 MG, WEEKLY
     Route: 058
     Dates: start: 201509
  11. FOLIC ACID. [Concomitant]
     Active Substance: FOLIC ACID
     Dosage: 4 TABLETS, 2X/WEEK
     Route: 048
     Dates: start: 2008

REACTIONS (2)
  - Cellulitis [Unknown]
  - Cerebrovascular accident [Unknown]

NARRATIVE: CASE EVENT DATE: 2016
